FAERS Safety Report 15918794 (Version 1)
Quarter: 2019Q1

REPORT INFORMATION
  Report Type: Spontaneous
  Country: US (occurrence: US)
  Receive Date: 20190205
  Receipt Date: 20190205
  Transmission Date: 20190417
  Serious: Yes (Other)
  Sender: FDA-Public Use
  Company Number: US-UNICHEM PHARMACEUTICALS (USA) INC-UCM201901-000043

PATIENT
  Age: 47 Year
  Sex: Male

DRUGS (4)
  1. LISINOPRIL. [Suspect]
     Active Substance: LISINOPRIL
     Dosage: 200 MG
  2. AMPICILLIN SULBACTAM [Concomitant]
     Active Substance: AMPICILLIN SODIUM\SULBACTAM SODIUM
     Indication: PNEUMONIA ASPIRATION
  3. AMLODIPINE [Suspect]
     Active Substance: AMLODIPINE BESYLATE
  4. VANCOMYCIN [Concomitant]
     Active Substance: VANCOMYCIN
     Indication: PNEUMONIA ASPIRATION

REACTIONS (8)
  - Hypoxia [Recovered/Resolved]
  - Pulmonary oedema [Recovering/Resolving]
  - Intentional overdose [Unknown]
  - Vomiting [Unknown]
  - Depressed level of consciousness [Unknown]
  - Acute kidney injury [Recovering/Resolving]
  - Lactic acidosis [Recovering/Resolving]
  - Hypotension [Recovering/Resolving]
